FAERS Safety Report 21060151 (Version 3)
Quarter: 2022Q3

REPORT INFORMATION
  Report Type: Spontaneous
  Country: US (occurrence: US)
  Receive Date: 20220708
  Receipt Date: 20220911
  Transmission Date: 20221027
  Serious: No
  Sender: FDA-Public Use
  Company Number: US-SA-SAC20220630000454

PATIENT
  Age: 48 Year
  Sex: Female

DRUGS (1)
  1. DUPIXENT [Suspect]
     Active Substance: DUPILUMAB
     Indication: Asthma
     Dosage: 300 MG, QOW
     Route: 058
     Dates: start: 20220519

REACTIONS (9)
  - Asthma [Recovering/Resolving]
  - Dyspnoea [Recovering/Resolving]
  - Impaired quality of life [Recovering/Resolving]
  - Swelling [Unknown]
  - Injection site urticaria [Unknown]
  - Injection site bruising [Unknown]
  - Rash papular [Unknown]
  - Pruritus [Unknown]
  - Injection site pruritus [Unknown]

NARRATIVE: CASE EVENT DATE: 20220101
